FAERS Safety Report 5056267-2 (Version None)
Quarter: 2006Q2

REPORT INFORMATION
  Report Type: 
  Country: None (occurrence: None)
  Receive Date: 20060616
  Receipt Date: 20060323
  Transmission Date: 20061013
  Serious: Yes (Other)
  Sender: FDA-Public Use
  Company Number: US-2006-006792

PATIENT
  Age: 44 Year
  Sex: Female
  Weight: 44 kg

DRUGS (13)
  1. CLIMARA [Suspect]
     Indication: MENOPAUSAL SYMPTOMS
     Dosage: 0.045 MG/D, CONT, TRANSDERMAL
     Route: 062
     Dates: start: 20060322, end: 20060323
  2. PREMARIN [Suspect]
     Indication: VULVOVAGINAL DRYNESS
     Dosage: 1 DOSE, VAGINAL
     Route: 067
     Dates: start: 20060323, end: 20060323
  3. AMOXICILLIN [Concomitant]
  4. DIFLUCAN [Concomitant]
  5. TOPAMAX [Concomitant]
  6. CLONAZEPAM [Concomitant]
  7. TRAZODONE HCL [Concomitant]
  8. PREVACID [Concomitant]
  9. HYDROCODONE (HYDROCODONE) [Concomitant]
  10. LEVOTHYROXINE SODIUM [Concomitant]
  11. BUTALBITAL, ACETAMINOPHEN + CAFFEINE (BUTALBITAL) [Concomitant]
  12. INDERAL LA [Concomitant]
  13. NICOTINE [Concomitant]

REACTIONS (1)
  - EPILEPSY [None]
